FAERS Safety Report 5118182-5 (Version None)
Quarter: 2006Q3

REPORT INFORMATION
  Report Type: 
  Country: None (occurrence: None)
  Receive Date: 20060928
  Receipt Date: 20060928
  Transmission Date: 20061208
  Serious: Yes (Life-Threatening, Hospitalization)
  Sender: FDA-Public Use
  Company Number: None

PATIENT
  Age: 33 Year
  Sex: Male
  Weight: 163.7 kg

DRUGS (10)
  1. PROTAMINE SULFATE [Suspect]
     Indication: COAGULOPATHY
     Dosage: 8MG ONCE IV
     Route: 042
     Dates: start: 20060113, end: 20060113
  2. CALCIUM ACETATE [Concomitant]
  3. MULTI-VITAMIN [Concomitant]
  4. SIMVASTATIN [Concomitant]
  5. WARFARIN SODIUM [Concomitant]
  6. RANITIDINE [Concomitant]
  7. ASPIRIN [Concomitant]
  8. CINACALCET [Concomitant]
  9. INSULIN - HUMAN - NPH [Concomitant]
  10. INSULIN -HUMAN- REGULAR [Concomitant]

REACTIONS (3)
  - ANAPHYLACTIC REACTION [None]
  - ELECTROMECHANICAL DISSOCIATION [None]
  - PROCEDURAL HYPOTENSION [None]
